FAERS Safety Report 7027924-3 (Version None)
Quarter: 2010Q4

REPORT INFORMATION
  Report Type: 
  Country: None (occurrence: None)
  Receive Date: 20101005
  Receipt Date: 20100928
  Transmission Date: 20110411
  Serious: No
  Sender: FDA-Public Use
  Company Number: JP-BAYER-201014707BYL

PATIENT
  Age: 64 Year
  Sex: Male
  Weight: 84 kg

DRUGS (4)
  1. NEXAVAR [Suspect]
     Indication: HEPATIC NEOPLASM MALIGNANT
     Dosage: TOTAL DAILY DOSE: 400 MG  UNIT DOSE: 200 MG
     Route: 048
     Dates: start: 20100825, end: 20100909
  2. ALLEGRA [Concomitant]
     Dosage: UNIT DOSE: 60 MG
     Route: 048
     Dates: start: 20100825, end: 20100909
  3. ADALAT CC [Concomitant]
     Dosage: UNIT DOSE: 20 MG
     Route: 048
     Dates: start: 20100825
  4. GLYCYRRHIZIN [Concomitant]
     Route: 065

REACTIONS (2)
  - BLOOD CREATINE PHOSPHOKINASE INCREASED [None]
  - PYREXIA [None]
